FAERS Safety Report 17655515 (Version 1)
Quarter: 2020Q2

REPORT INFORMATION
  Report Type: Spontaneous
  Country: US (occurrence: US)
  Receive Date: 20200410
  Receipt Date: 20200410
  Transmission Date: 20200713
  Serious: Yes (Hospitalization)
  Sender: FDA-Public Use
  Company Number: None

PATIENT
  Sex: Female

DRUGS (6)
  1. FLOVENT [Concomitant]
     Active Substance: FLUTICASONE PROPIONATE
  2. DOXYCYCK [Concomitant]
  3. PULMOZYME [Suspect]
     Active Substance: DORNASE ALFA
     Indication: RESPIRATORY FAILURE
     Dosage: ?          OTHER ROUTE:ORAL INHALATION?
     Dates: start: 20190827
  4. NYSTATIN. [Concomitant]
     Active Substance: NYSTATIN
  5. IPRATROPIUM [Concomitant]
     Active Substance: IPRATROPIUM
  6. METRONIDAZOL [Concomitant]
     Active Substance: METRONIDAZOLE

REACTIONS (1)
  - Infection [None]
